FAERS Safety Report 5238546-9 (Version None)
Quarter: 2007Q1

REPORT INFORMATION
  Report Type: 
  Country: None (occurrence: None)
  Receive Date: 20070215
  Receipt Date: 20070213
  Transmission Date: 20070707
  Serious: Yes (Hospitalization)
  Sender: FDA-Public Use
  Company Number: 13663620

PATIENT
  Age: 29 Year
  Sex: Female

DRUGS (5)
  1. EPIVIR [Suspect]
     Indication: HIV INFECTION
     Route: 048
     Dates: start: 20050722, end: 20050809
  2. STAVUDINE [Suspect]
     Indication: HIV INFECTION
     Route: 048
     Dates: start: 20050722, end: 20050809
  3. KALETRA [Suspect]
     Indication: HIV INFECTION
     Route: 048
     Dates: start: 20050722, end: 20050809
  4. CLARITHROMYCIN [Concomitant]
  5. BAKTAR [Concomitant]

REACTIONS (2)
  - ABDOMINAL PAIN [None]
  - TUBERCULOSIS GASTROINTESTINAL [None]
